FAERS Safety Report 7826073-1 (Version None)
Quarter: 2011Q4

REPORT INFORMATION
  Report Type: 
  Country: None (occurrence: None)
  Receive Date: 20111019
  Receipt Date: 20111011
  Transmission Date: 20120403
  Serious: Yes (Other)
  Sender: FDA-Public Use
  Company Number: US-RB-027644-11

PATIENT
  Age: 25 Year
  Sex: Female

DRUGS (2)
  1. SUBUTEX [Suspect]
     Dosage: TAPERED TO 4 MG DAILY AT THE TIME OD DELIVERY
     Route: 060
     Dates: start: 20110101
  2. SUBUTEX [Suspect]
     Indication: DRUG DEPENDENCE
     Route: 060
     Dates: start: 20110401, end: 20110101

REACTIONS (4)
  - MATERNAL EXPOSURE DURING PREGNANCY [None]
  - LOSS OF CONSCIOUSNESS [None]
  - OXYGEN SATURATION DECREASED [None]
  - LABOUR COMPLICATION [None]
